FAERS Safety Report 25450952 (Version 2)
Quarter: 2025Q2

REPORT INFORMATION
  Report Type: Spontaneous
  Country: US (occurrence: US)
  Receive Date: 20250618
  Receipt Date: 20250624
  Transmission Date: 20250717
  Serious: No
  Sender: ABBVIE
  Company Number: US-ABBVIE-6329924

PATIENT
  Age: 47 Year
  Sex: Male
  Weight: 70.76 kg

DRUGS (3)
  1. SYNTHROID [Suspect]
     Active Substance: LEVOTHYROXINE SODIUM
     Indication: Hypothyroidism
     Dosage: FORM STRENGTH: 137 MICROGRAM, START DATE TEXT: ABOUT 7-9 YEARS AGO
     Route: 048
     Dates: end: 2024
  2. SYNTHROID [Suspect]
     Active Substance: LEVOTHYROXINE SODIUM
     Indication: Hypothyroidism
     Dosage: FORM STRENGTH: 75 MICROGRAM
     Route: 048
     Dates: start: 2024
  3. SYNTHROID [Suspect]
     Active Substance: LEVOTHYROXINE SODIUM
     Indication: Hypothyroidism
     Route: 048
     Dates: start: 2025

REACTIONS (7)
  - Dry skin [Recovered/Resolved]
  - Dry eye [Recovering/Resolving]
  - Lethargy [Recovered/Resolved]
  - Fatigue [Recovered/Resolved]
  - Nasal dryness [Recovered/Resolved]
  - Somnolence [Recovered/Resolved]
  - Blood thyroid stimulating hormone abnormal [Unknown]

NARRATIVE: CASE EVENT DATE: 20240101
